FAERS Safety Report 24778960 (Version 2)
Quarter: 2024Q4

REPORT INFORMATION
  Report Type: Spontaneous
  Country: RS (occurrence: RS)
  Receive Date: 20241226
  Receipt Date: 20241229
  Transmission Date: 20250114
  Serious: Yes (Hospitalization)
  Sender: ALEXION PHARMACEUTICALS
  Company Number: RS-ASTRAZENECA-202412BKN009903RS

PATIENT

DRUGS (28)
  1. SYMBICORT [Suspect]
     Active Substance: BUDESONIDE\FORMOTEROL FUMARATE DIHYDRATE
     Dosage: 160/4,5MCG 2 X1 INHALES
  2. SYMBICORT [Suspect]
     Active Substance: BUDESONIDE\FORMOTEROL FUMARATE DIHYDRATE
     Dosage: 160/4,5MCG 2 X1 INHALES
  3. SYMBICORT [Suspect]
     Active Substance: BUDESONIDE\FORMOTEROL FUMARATE DIHYDRATE
     Dosage: 160/4,5MCG 2 X1 INHALES
  4. SYMBICORT [Suspect]
     Active Substance: BUDESONIDE\FORMOTEROL FUMARATE DIHYDRATE
     Dosage: 160/4,5MCG 2 X1 INHALES
  5. AMOXICILLIN [Concomitant]
     Active Substance: AMOXICILLIN
     Dosage: TBL. 1000MG 2X1
     Route: 065
  6. AMOXICILLIN [Concomitant]
     Active Substance: AMOXICILLIN
     Dosage: TBL. 1000MG 2X1
     Route: 065
  7. PROBIOTICS NOS [Concomitant]
     Active Substance: PROBIOTICS NOS
     Route: 065
  8. PROBIOTICS NOS [Concomitant]
     Active Substance: PROBIOTICS NOS
     Route: 065
  9. THEOPHYLLINE [Concomitant]
     Active Substance: THEOPHYLLINE
     Route: 065
  10. THEOPHYLLINE [Concomitant]
     Active Substance: THEOPHYLLINE
     Route: 065
  11. FENOTEROL [Concomitant]
     Active Substance: FENOTEROL
     Route: 065
  12. FENOTEROL [Concomitant]
     Active Substance: FENOTEROL
     Route: 065
  13. ASPIRIN [Concomitant]
     Active Substance: ASPIRIN
     Route: 065
  14. ASPIRIN [Concomitant]
     Active Substance: ASPIRIN
     Route: 065
  15. BISOPROLOL [Concomitant]
     Active Substance: BISOPROLOL
     Route: 065
  16. BISOPROLOL [Concomitant]
     Active Substance: BISOPROLOL
     Route: 065
  17. FOSINOPRIL [Concomitant]
     Active Substance: FOSINOPRIL
     Dosage: 20 MILLIGRAM, QD
     Route: 065
  18. FOSINOPRIL [Concomitant]
     Active Substance: FOSINOPRIL
     Dosage: 20 MILLIGRAM, QD
     Route: 065
  19. FOSINOPRIL HYDROCHLOROTHIAZIDE BIOGARAN [Concomitant]
     Dosage: 1 DOSAGE FORM, QD
     Route: 065
  20. FOSINOPRIL HYDROCHLOROTHIAZIDE BIOGARAN [Concomitant]
     Dosage: 1 DOSAGE FORM, QD
     Route: 065
  21. ALBUMIN HUMAN;FUROSEMIDE SODIUM [Concomitant]
     Dosage: TABLETS EVERY 2ND DAY
     Route: 065
  22. ALBUMIN HUMAN;FUROSEMIDE SODIUM [Concomitant]
     Dosage: TABLETS EVERY 2ND DAY
     Route: 065
  23. FLUTICASONE [Concomitant]
     Active Substance: FLUTICASONE
     Dosage: SPRAY 2X1 IN THE NOSE
     Route: 065
  24. FLUTICASONE [Concomitant]
     Active Substance: FLUTICASONE
     Dosage: SPRAY 2X1 IN THE NOSE
     Route: 065
  25. CETIRIZINE HYDROCHLORIDE [Concomitant]
     Active Substance: CETIRIZINE HYDROCHLORIDE
     Dosage: 10 MILLIGRAM
     Route: 065
  26. CETIRIZINE HYDROCHLORIDE [Concomitant]
     Active Substance: CETIRIZINE HYDROCHLORIDE
     Dosage: 10 MILLIGRAM
     Route: 065
  27. PSEUDOEPHEDRINE [Concomitant]
     Active Substance: PSEUDOEPHEDRINE
     Dosage: 60 MILLIGRAM
     Route: 065
  28. PSEUDOEPHEDRINE [Concomitant]
     Active Substance: PSEUDOEPHEDRINE
     Dosage: 60 MILLIGRAM
     Route: 065

REACTIONS (5)
  - Asthma [Unknown]
  - Dyspnoea [Unknown]
  - Cough [Unknown]
  - Haemoptysis [Unknown]
  - Breath sounds abnormal [Unknown]
